FAERS Safety Report 14993698 (Version 3)
Quarter: 2018Q3

REPORT INFORMATION
  Report Type: Report from Study
  Country: None (occurrence: US)
  Receive Date: 20180611
  Receipt Date: 20180713
  Transmission Date: 20181010
  Serious: Yes (Other)
  Sender: FDA-Public Use
  Company Number: US-ABBVIE-18K-163-2377215-00

PATIENT
  Age: 61 Year
  Sex: Female

DRUGS (32)
  1. SYSTANE (HYPROMELLOSE 2910 (4000 MPA.S)) [Concomitant]
     Active Substance: HYPROMELLOSE 2910 (4000 MPA.S)
     Indication: EYE DISORDER
  2. TORSEMIDE. [Concomitant]
     Active Substance: TORSEMIDE
     Indication: SWELLING
  3. FLUCONAZOLE. [Concomitant]
     Active Substance: FLUCONAZOLE
     Indication: STOMATITIS
  4. FISH OIL [Concomitant]
     Active Substance: FISH OIL
     Indication: SUPPLEMENTATION THERAPY
  5. LEVOCETIRIZINE [Concomitant]
     Active Substance: LEVOCETIRIZINE
     Indication: HYPERSENSITIVITY
  6. ALBUTEROL. [Concomitant]
     Active Substance: ALBUTEROL
     Indication: DYSPNOEA
  7. ESTRACE [Concomitant]
     Active Substance: ESTRADIOL
     Indication: PRODUCT USED FOR UNKNOWN INDICATION
  8. AQUORAL [Concomitant]
     Indication: DRY MOUTH
  9. MOUTH WASH [Concomitant]
     Indication: STOMATITIS
  10. PROAIR HFA [Concomitant]
     Active Substance: ALBUTEROL SULFATE
     Indication: DYSPNOEA
  11. HUMIRA [Suspect]
     Active Substance: ADALIMUMAB
     Route: 058
  12. METOPROLOL. [Concomitant]
     Active Substance: METOPROLOL
     Indication: MITRAL VALVE PROLAPSE
  13. NALTREXONE [Concomitant]
     Active Substance: NALTREXONE
     Indication: RHEUMATOID ARTHRITIS
  14. GEL KAM [Concomitant]
     Indication: DRY MOUTH
  15. HUMIRA [Suspect]
     Active Substance: ADALIMUMAB
     Indication: RHEUMATOID ARTHRITIS
     Route: 058
     Dates: start: 201703
  16. METHOTREXATE. [Concomitant]
     Active Substance: METHOTREXATE
     Indication: RHEUMATOID ARTHRITIS
  17. POTASSIUM CHLORIDE. [Concomitant]
     Active Substance: POTASSIUM CHLORIDE
     Indication: BLOOD POTASSIUM DECREASED
  18. FLONASE [Concomitant]
     Active Substance: FLUTICASONE PROPIONATE
     Indication: HYPERSENSITIVITY
  19. MAXALT [Concomitant]
     Active Substance: RIZATRIPTAN BENZOATE
     Indication: MIGRAINE
  20. ACYCLOVIR. [Concomitant]
     Active Substance: ACYCLOVIR
     Indication: STOMATITIS
  21. PANTOPRAZOLE [Concomitant]
     Active Substance: PANTOPRAZOLE
     Indication: GASTROOESOPHAGEAL REFLUX DISEASE
  22. CELEBREX [Concomitant]
     Active Substance: CELECOXIB
     Indication: RHEUMATOID ARTHRITIS
  23. GABAPENTIN. [Concomitant]
     Active Substance: GABAPENTIN
     Indication: SPINAL COLUMN STENOSIS
  24. GABAPENTIN. [Concomitant]
     Active Substance: GABAPENTIN
     Indication: INTERVERTEBRAL DISC PROTRUSION
  25. BUSPIRONE [Concomitant]
     Active Substance: BUSPIRONE HYDROCHLORIDE
     Indication: ANXIETY
  26. BUSPIRONE [Concomitant]
     Active Substance: BUSPIRONE HYDROCHLORIDE
     Indication: IRRITABILITY
  27. ACETAMINOPHEN. [Concomitant]
     Active Substance: ACETAMINOPHEN
     Indication: PAIN
  28. FOLIC ACID. [Concomitant]
     Active Substance: FOLIC ACID
     Indication: VITAMIN SUPPLEMENTATION
  29. VITAMIN D [Concomitant]
     Active Substance: CHOLECALCIFEROL
     Indication: VITAMIN SUPPLEMENTATION
  30. BELSOMRA [Concomitant]
     Active Substance: SUVOREXANT
     Indication: SLEEP DISORDER THERAPY
  31. TRIAMCINOLONE ACETONIDE. [Concomitant]
     Active Substance: TRIAMCINOLONE ACETONIDE
     Indication: ECZEMA
  32. ONDANSETRON [Concomitant]
     Active Substance: ONDANSETRON
     Indication: NAUSEA

REACTIONS (6)
  - Gastric hypomotility [Recovering/Resolving]
  - Irritable bowel syndrome [Recovering/Resolving]
  - Dyspepsia [Recovering/Resolving]
  - Oesophageal stenosis [Recovering/Resolving]
  - Systemic lupus erythematosus [Recovering/Resolving]
  - Rheumatoid arthritis [Recovering/Resolving]

NARRATIVE: CASE EVENT DATE: 201805
